FAERS Safety Report 17362560 (Version 1)
Quarter: 2020Q1

REPORT INFORMATION
  Report Type: Spontaneous
  Country: IE (occurrence: IE)
  Receive Date: 20200203
  Receipt Date: 20200203
  Transmission Date: 20200409
  Serious: Yes (Other)
  Sender: FDA-Public Use
  Company Number: IE-GLAXOSMITHKLINE-IE2019GSK140910

PATIENT

DRUGS (5)
  1. SALBUTAMOL [Suspect]
     Active Substance: ALBUTEROL
     Indication: RESPIRATORY SYMPTOM
     Dosage: UNK, PRN
     Route: 055
  2. AMOXICILLIN. [Concomitant]
     Active Substance: AMOXICILLIN
     Dosage: 2.5 MG, UNK
  3. FLUTICASONE. [Suspect]
     Active Substance: FLUTICASONE
     Indication: RESPIRATORY SYMPTOM
     Dosage: UNK
     Route: 055
  4. AMOXICILLIN. [Concomitant]
     Active Substance: AMOXICILLIN
     Indication: RESPIRATORY SYMPTOM
     Dosage: UNK
     Route: 042
  5. SALBUTAMOL [Suspect]
     Active Substance: ALBUTEROL
     Indication: RESPIRATORY SYMPTOM
     Dosage: UNK, 6D (EVERY FOUR HOURS)

REACTIONS (6)
  - Metabolic alkalosis [Recovered/Resolved]
  - Electrocardiogram abnormal [Unknown]
  - Gitelman^s syndrome [Recovered/Resolved]
  - Hypokalaemia [Recovered/Resolved]
  - Hyporesponsive to stimuli [Unknown]
  - Lethargy [Unknown]
